FAERS Safety Report 16645682 (Version 1)
Quarter: 2019Q3

REPORT INFORMATION
  Report Type: Spontaneous
  Country: IT (occurrence: IT)
  Receive Date: 20190730
  Receipt Date: 20190730
  Transmission Date: 20191004
  Serious: Yes (Hospitalization, Other)
  Sender: FDA-Public Use
  Company Number: IT-AUROBINDO-AUR-APL-2019-043725

PATIENT

DRUGS (6)
  1. COLISTIN [Suspect]
     Active Substance: COLISTIN
     Indication: INTRACRANIAL INFECTION
     Dosage: UNK
     Route: 037
     Dates: start: 20181202, end: 20181222
  2. COLISTIN [Suspect]
     Active Substance: COLISTIN
     Indication: PSEUDOMONAS INFECTION
     Dosage: UNK
     Route: 037
     Dates: start: 20190102, end: 20190201
  3. CIPROFLOXACIN. [Suspect]
     Active Substance: CIPROFLOXACIN
     Indication: PSEUDOMONAS INFECTION
     Dosage: UNK
     Route: 065
  4. CEFTOLOZANE SULFATE;TAZOBACTAM SODIUM [Suspect]
     Active Substance: CEFTOLOZANE SULFATE\TAZOBACTAM SODIUM
     Indication: INTRACRANIAL INFECTION
     Dosage: 3 GRAM, EVERY 8 HOURS (3 GRAM, Q8H0
     Route: 065
     Dates: start: 20181202, end: 20181222
  5. CEFTOLOZANE SULFATE;TAZOBACTAM SODIUM [Suspect]
     Active Substance: CEFTOLOZANE SULFATE\TAZOBACTAM SODIUM
     Indication: PSEUDOMONAS INFECTION
     Dosage: UNK
     Route: 065
     Dates: start: 20190102, end: 20190201
  6. CIPROFLOXACIN. [Suspect]
     Active Substance: CIPROFLOXACIN
     Indication: INTRACRANIAL INFECTION
     Dosage: 400 MILLIGRAM, TWO TIMES A DAY
     Route: 065
     Dates: start: 20190102, end: 20190201

REACTIONS (6)
  - Off label use [Unknown]
  - Pseudomonas infection [Recovering/Resolving]
  - Dehiscence [Recovering/Resolving]
  - Osteomyelitis [Recovering/Resolving]
  - Wound secretion [Recovering/Resolving]
  - Bone operation [Recovering/Resolving]

NARRATIVE: CASE EVENT DATE: 201812
